FAERS Safety Report 20461284 (Version 1)
Quarter: 2022Q1

REPORT INFORMATION
  Report Type: Spontaneous
  Country: FI (occurrence: FI)
  Receive Date: 20220211
  Receipt Date: 20220211
  Transmission Date: 20220423
  Serious: Yes (Other)
  Sender: FDA-Public Use
  Company Number: FI-PFIZER INC-202200211209

PATIENT
  Age: 38 Year
  Sex: Male

DRUGS (1)
  1. DIFLUCAN [Suspect]
     Active Substance: FLUCONAZOLE
     Dosage: 0.5 DF, 2X/DAY (TWO HALVES WITH 5 HOURS APART)
     Dates: start: 200108, end: 200108

REACTIONS (8)
  - Syncope [Recovered/Resolved]
  - Chlamydial infection [Unknown]
  - Dizziness [Recovered/Resolved]
  - Tinea pedis [Unknown]
  - Foot deformity [Unknown]
  - Trigger finger [Unknown]
  - Intentional product misuse [Unknown]
  - Drug intolerance [Not Recovered/Not Resolved]

NARRATIVE: CASE EVENT DATE: 20010801
